FAERS Safety Report 6126564-8 (Version None)
Quarter: 2009Q1

REPORT INFORMATION
  Report Type: 
  Country: None (occurrence: None)
  Receive Date: 20090320
  Receipt Date: 20090310
  Transmission Date: 20090719
  Serious: Yes (Disabling, Other)
  Sender: FDA-Public Use
  Company Number: FR-PFIZER INC-2008079184

PATIENT

DRUGS (3)
  1. SUNITINIB MALATE [Suspect]
     Indication: BREAST CANCER
     Dosage: 37.5 MG, 1X/DAY
     Route: 048
     Dates: start: 20080722, end: 20080820
  2. *CAPECITABINE [Suspect]
     Indication: BREAST CANCER
     Dosage: 1500 MG, 2X/DAY
     Route: 048
     Dates: start: 20080722, end: 20080917
  3. ZOLADEX [Concomitant]
     Dates: start: 20020101

REACTIONS (6)
  - GINGIVAL BLEEDING [None]
  - HYPERBILIRUBINAEMIA [None]
  - PURPURA [None]
  - RENAL FAILURE [None]
  - RENAL INFARCT [None]
  - THROMBOCYTOPENIA [None]
